FAERS Safety Report 11366720 (Version 1)
Quarter: 2015Q3

REPORT INFORMATION
  Report Type: Spontaneous
  Country: US (occurrence: US)
  Receive Date: 20150811
  Receipt Date: 20150811
  Transmission Date: 20151125
  Serious: No
  Sender: FDA-Public Use
  Company Number: US-ELI_LILLY_AND_COMPANY-US201104007572

PATIENT
  Sex: Male
  Weight: 65.31 kg

DRUGS (3)
  1. AXIRON [Suspect]
     Active Substance: TESTOSTERONE
     Indication: BLOOD TESTOSTERONE DECREASED
     Dosage: 30 MG, BID
     Dates: start: 20110408
  2. AXIRON [Suspect]
     Active Substance: TESTOSTERONE
     Dosage: UNK UNK, UNKNOWN
  3. ASPIRIN. [Concomitant]
     Active Substance: ASPIRIN
     Indication: PAIN
     Dosage: UNK, PRN

REACTIONS (2)
  - Incorrect dose administered [Recovered/Resolved]
  - Weight decreased [Unknown]
